FAERS Safety Report 24150253 (Version 2)
Quarter: 2024Q3

REPORT INFORMATION
  Report Type: Report from Study
  Country: SA (occurrence: SA)
  Receive Date: 20240730
  Receipt Date: 20240808
  Transmission Date: 20241016
  Serious: Yes (Other)
  Sender: EMD SERONO INC
  Company Number: SA-Merck Healthcare KGaA-2024039865

PATIENT
  Age: 15 Year
  Sex: Female

DRUGS (1)
  1. SAIZEN [Suspect]
     Active Substance: SOMATROPIN
     Indication: Growth hormone deficiency
     Route: 058
     Dates: start: 20240314, end: 20240718

REACTIONS (2)
  - Renal failure [Unknown]
  - Postoperative respiratory distress [Unknown]
